FAERS Safety Report 7770276-1 (Version None)
Quarter: 2011Q3

REPORT INFORMATION
  Report Type: 
  Country: None (occurrence: None)
  Receive Date: 20110922
  Receipt Date: 20100901
  Transmission Date: 20111222
  Serious: Yes (Hospitalization)
  Sender: FDA-Public Use
  Company Number: US-ASTRAZENECA-2009UW21915

PATIENT
  Age: 364 Month
  Sex: Female
  Weight: 121.6 kg

DRUGS (22)
  1. SEROQUEL [Suspect]
     Route: 048
     Dates: start: 20000420
  2. SEROQUEL [Suspect]
     Route: 048
     Dates: start: 20000420
  3. LITHIUM CARBONATE [Concomitant]
  4. PROZAC [Concomitant]
  5. ABILIFY [Concomitant]
  6. REMERON [Concomitant]
     Dosage: 15 MG, 30 MG DISPENSED
     Dates: start: 20000419
  7. SEROQUEL [Suspect]
     Indication: ANXIETY
     Dosage: 25 MG UP TO 300 MG
     Route: 048
     Dates: start: 20000401
  8. LAMICTAL [Concomitant]
  9. SEROQUEL [Suspect]
     Indication: MOOD SWINGS
     Dosage: 25 MG UP TO 300 MG
     Route: 048
     Dates: start: 20000401
  10. SEROQUEL [Suspect]
     Indication: INSOMNIA
     Dosage: 25 MG UP TO 300 MG
     Route: 048
     Dates: start: 20000401
  11. LEXAPRO [Concomitant]
  12. NEURONTIN [Concomitant]
     Dates: start: 20000518
  13. CELEBREX [Concomitant]
     Dates: start: 20000602
  14. BYETTA [Concomitant]
     Dosage: 15 MG- 20 MG
     Dates: start: 20070222
  15. SEROQUEL [Suspect]
     Indication: BIPOLAR DISORDER
     Dosage: 25 MG UP TO 300 MG
     Route: 048
     Dates: start: 20000401
  16. SEROQUEL [Suspect]
     Route: 048
     Dates: start: 20000420
  17. TOPAMAX [Concomitant]
     Dosage: 25 MG, 100 MG DISPENSED
     Dates: start: 20000513
  18. PRILOSEC [Concomitant]
     Dates: start: 20000428
  19. WELLBUTRIN SR [Concomitant]
     Dosage: 150
     Dates: start: 20000602
  20. SEROQUEL [Suspect]
     Route: 048
     Dates: start: 20000420
  21. XANAX [Concomitant]
  22. PAXIL [Concomitant]
     Dates: start: 20000518

REACTIONS (3)
  - WEIGHT INCREASED [None]
  - DIABETES MELLITUS INADEQUATE CONTROL [None]
  - TYPE 2 DIABETES MELLITUS [None]
